FAERS Safety Report 21713146 (Version 1)
Quarter: 2022Q4

REPORT INFORMATION
  Report Type: Spontaneous
  Country: US (occurrence: US)
  Receive Date: 20221212
  Receipt Date: 20221212
  Transmission Date: 20230113
  Serious: Yes (Other)
  Sender: FDA-Public Use
  Company Number: US-HALEON-USCH2022046966

PATIENT
  Sex: Female

DRUGS (1)
  1. BIOTENE GENTLE MINT (SODIUM MONOFLUOROPHOSPHATE) [Suspect]
     Active Substance: SODIUM MONOFLUOROPHOSPHATE
     Indication: Product used for unknown indication
     Dosage: UNK

REACTIONS (3)
  - Choking [Unknown]
  - Salivary hypersecretion [Unknown]
  - Product complaint [Unknown]
